FAERS Safety Report 8797153 (Version 3)
Quarter: 2015Q2

REPORT INFORMATION
  Report Type: Report from Study
  Country: US (occurrence: US)
  Receive Date: 20120919
  Receipt Date: 20150629
  Transmission Date: 20150821
  Serious: Yes (Death)
  Sender: FDA-Public Use
  Company Number: US-ROCHE-1122889

PATIENT
  Sex: Male

DRUGS (15)
  1. AVASTIN [Suspect]
     Active Substance: BEVACIZUMAB
     Dosage: 12/SEP/2008, 10/OCT/2008, 24/OCT/2008, 14/NOV/2008, 05/DEC/2008, 19/DEC/2008, 31/DEC/2008, 16/JAN/20
     Route: 042
  2. CISPLATIN. [Concomitant]
     Active Substance: CISPLATIN
     Route: 042
  3. ELOXATIN [Concomitant]
     Active Substance: OXALIPLATIN
     Route: 042
  4. DEXAMETHAZONE [Concomitant]
     Active Substance: DEXAMETHASONE
     Route: 042
  5. ALOXI [Concomitant]
     Active Substance: PALONOSETRON HYDROCHLORIDE
     Route: 042
  6. ZOFRAN [Concomitant]
     Active Substance: ONDANSETRON HYDROCHLORIDE
     Route: 042
  7. ABRAXANE [Concomitant]
     Active Substance: PACLITAXEL
     Route: 042
  8. GEMZAR [Concomitant]
     Active Substance: GEMCITABINE HYDROCHLORIDE
  9. AVASTIN [Suspect]
     Active Substance: BEVACIZUMAB
     Indication: PANCREATIC CARCINOMA
     Dosage: 28/JUL/2010, 19/AUG/2010, 08/SEP/2010, 22/SEP/2010
     Route: 042
     Dates: start: 20080321
  10. CARBOPLATIN. [Concomitant]
     Active Substance: CARBOPLATIN
     Route: 042
  11. CPT-11 [Concomitant]
     Active Substance: IRINOTECAN
     Route: 065
  12. AVASTIN [Suspect]
     Active Substance: BEVACIZUMAB
     Dosage: 25/APR/2008, 16/MAY/2008, 13/JUN/2008, 29/AUG/2008
     Route: 042
  13. AVASTIN [Suspect]
     Active Substance: BEVACIZUMAB
     Dosage: 12/JUN/2009
     Route: 042
  14. LORAZEPAM. [Concomitant]
     Active Substance: LORAZEPAM
     Route: 042
  15. 5-FLUOROURACIL [Concomitant]
     Active Substance: FLUOROURACIL
     Route: 065

REACTIONS (2)
  - Off label use [Unknown]
  - Disease progression [Fatal]
